FAERS Safety Report 10232381 (Version 1)
Quarter: 2014Q2

REPORT INFORMATION
  Report Type: Report from Study
  Country: CA (occurrence: CA)
  Receive Date: 20140612
  Receipt Date: 20140612
  Transmission Date: 20141212
  Serious: Yes (Other)
  Sender: FDA-Public Use
  Company Number: CA-BAYER-2014-083644

PATIENT
  Age: 52 Year
  Sex: Female

DRUGS (9)
  1. BETASERON [Suspect]
     Indication: MULTIPLE SCLEROSIS
     Dosage: 0.250 MG, UNK
     Dates: start: 20060402
  2. ESTROGEL [Concomitant]
  3. DETROL [Concomitant]
  4. RABEPRAZOLE [Concomitant]
     Dosage: 20 MG, QD
  5. CARBAMAZEPINE [Concomitant]
     Dosage: 200 MG, BID
  6. BACLOFEN [Concomitant]
     Dosage: 20 MG, BID
  7. TRAZODONE [Concomitant]
     Dosage: UNK UNK, HS
  8. VITAMIN D [Concomitant]
     Dosage: 1000 IU, QD
  9. WELLBUTRIN [Concomitant]
     Dosage: 150 MG, BID

REACTIONS (9)
  - Dyspnoea at rest [None]
  - Chest discomfort [None]
  - Musculoskeletal pain [None]
  - Arthropod sting [None]
  - Peripheral swelling [None]
  - Pain in extremity [None]
  - Burning sensation [None]
  - Hyperaesthesia [None]
  - Pain of skin [None]
